FAERS Safety Report 5238067-3 (Version None)
Quarter: 2007Q1

REPORT INFORMATION
  Report Type: 
  Country: None (occurrence: None)
  Receive Date: 20070215
  Receipt Date: 20070204
  Transmission Date: 20070707
  Serious: Yes (Other)
  Sender: FDA-Public Use
  Company Number: PHEH2007US01650

PATIENT
  Sex: Female

DRUGS (1)
  1. AREDIA [Suspect]
     Route: 042
     Dates: start: 20050101, end: 20060901

REACTIONS (3)
  - FEELING OF DESPAIR [None]
  - OSTEONECROSIS [None]
  - PAIN [None]
